FAERS Safety Report 6205644-2 (Version None)
Quarter: 2009Q2

REPORT INFORMATION
  Report Type: 
  Country: None (occurrence: None)
  Receive Date: 20090527
  Receipt Date: 20090413
  Transmission Date: 20091009
  Serious: No
  Sender: FDA-Public Use
  Company Number: US-ABBOTT-09P-163-0568230-00

PATIENT
  Sex: Male
  Weight: 99.88 kg

DRUGS (10)
  1. SIMCOR [Suspect]
     Indication: LOW DENSITY LIPOPROTEIN INCREASED
     Dosage: 500/20 MG
     Route: 048
     Dates: start: 20090403
  2. SIMCOR [Suspect]
     Indication: HIGH DENSITY LIPOPROTEIN DECREASED
  3. SIMCOR [Suspect]
     Indication: BLOOD TRIGLYCERIDES INCREASED
  4. DIGOXIN [Concomitant]
     Indication: ARRHYTHMIA
     Route: 048
  5. NORVASC [Concomitant]
     Indication: HYPERTENSION
     Route: 048
  6. PLAVIX [Concomitant]
     Indication: CAROTID ARTERY OCCLUSION
     Route: 048
  7. LOVOXYL [Concomitant]
     Indication: HYPOTHYROIDISM
     Route: 048
  8. NORPACE [Concomitant]
     Indication: ARRHYTHMIA
     Dosage: 150 MG 2 TABS
     Route: 048
  9. LISINOPRIL [Concomitant]
     Indication: HYPERTENSION
     Route: 048
  10. DIOVAN HCT [Concomitant]
     Indication: HYPERTENSION
     Dosage: 180/12.5
     Route: 048

REACTIONS (1)
  - FLUSHING [None]
